FAERS Safety Report 20097335 (Version 2)
Quarter: 2021Q4

REPORT INFORMATION
  Report Type: Report from Study
  Country: MX (occurrence: MX)
  Receive Date: 20211122
  Receipt Date: 20211206
  Transmission Date: 20220303
  Serious: Yes (Other)
  Sender: FDA-Public Use
  Company Number: MX-NOVARTISPH-NVSC2021MX265812

PATIENT
  Sex: Male
  Weight: 93 kg

DRUGS (3)
  1. EXFORGE HCT [Suspect]
     Active Substance: AMLODIPINE BESYLATE\HYDROCHLOROTHIAZIDE\VALSARTAN
     Indication: Hypertension
     Dosage: 1 DOSAGE FORM, QD (10/320/25 MG) (STARTED AROUND 12 AGO)
     Route: 048
  2. CARVEDILOL [Concomitant]
     Active Substance: CARVEDILOL
     Indication: Blood pressure measurement
     Dosage: 1 DF, QD (STARTED AROUND 9 YEARS AGO)
     Route: 048
  3. ASPIRIN [Concomitant]
     Active Substance: ASPIRIN
     Indication: Blood pressure measurement
     Dosage: 1 DOSAGE FORM, QD (STARTED MORE THAN 9 YEARS AGO)
     Route: 048

REACTIONS (4)
  - Diabetes mellitus [Not Recovered/Not Resolved]
  - Asthenopia [Not Recovered/Not Resolved]
  - Peripheral swelling [Recovered/Resolved]
  - Blood cholesterol increased [Not Recovered/Not Resolved]
